FAERS Safety Report 8243388-6 (Version None)
Quarter: 2012Q1

REPORT INFORMATION
  Report Type: 
  Country: None (occurrence: None)
  Receive Date: 20120329
  Receipt Date: 20120326
  Transmission Date: 20120608
  Serious: No
  Sender: FDA-Public Use
  Company Number: US-PFIZER INC-2012077177

PATIENT
  Age: 10 Month
  Sex: Female

DRUGS (1)
  1. PEDIATRIC ADVIL [Suspect]
     Indication: PAIN
     Dosage: UNK

REACTIONS (2)
  - THERAPEUTIC RESPONSE UNEXPECTED [None]
  - SOMNOLENCE [None]
